FAERS Safety Report 5075794-5 (Version None)
Quarter: 2006Q3

REPORT INFORMATION
  Report Type: 
  Country: None (occurrence: None)
  Receive Date: 20060809
  Receipt Date: 20060727
  Transmission Date: 20061208
  Serious: Yes (Other)
  Sender: FDA-Public Use
  Company Number: US-GLAXOSMITHKLINE-A0613781A

PATIENT
  Sex: Female

DRUGS (4)
  1. WELLBUTRIN XL [Suspect]
     Indication: DEPRESSION
     Dosage: 450MG PER DAY
     Route: 048
     Dates: start: 20060101
  2. LAMICTAL [Concomitant]
     Dosage: 200MG PER DAY
     Route: 048
     Dates: start: 20050401
  3. SONATA [Concomitant]
     Dosage: 20MG AS REQUIRED
     Route: 048
     Dates: start: 20030101
  4. CONCERTA [Concomitant]
     Dosage: 54MG IN THE MORNING
     Route: 048
     Dates: start: 20000101

REACTIONS (3)
  - PHOTOPSIA [None]
  - RETINAL TEAR [None]
  - VISUAL DISTURBANCE [None]
